FAERS Safety Report 7806069-6 (Version None)
Quarter: 2011Q4

REPORT INFORMATION
  Report Type: 
  Country: None (occurrence: None)
  Receive Date: 20111011
  Receipt Date: 20110929
  Transmission Date: 20120403
  Serious: Yes (Hospitalization)
  Sender: FDA-Public Use
  Company Number: CA-JNJFOC-20110812580

PATIENT
  Sex: Female
  Weight: 69.6 kg

DRUGS (9)
  1. ZOLEDRONOC ACID [Concomitant]
     Indication: OSTEOPOROSIS
     Route: 042
     Dates: start: 20110501
  2. METHOTREXATE [Concomitant]
     Indication: RHEUMATOID ARTHRITIS
     Route: 048
  3. REMICADE [Suspect]
     Indication: RHEUMATOID ARTHRITIS
     Dosage: INFUSION # 67 PRIOR TO THESE SYMPTOMS
     Route: 042
     Dates: start: 20030818, end: 20061101
  4. SYNTHROID [Concomitant]
     Indication: HYPOTHYROIDISM
     Route: 048
  5. ZOLEDRONOC ACID [Concomitant]
     Route: 042
  6. REMICADE [Suspect]
     Route: 042
     Dates: start: 20070601
  7. REMICADE [Suspect]
     Dosage: # 67
     Route: 042
     Dates: start: 20110825
  8. REMICADE [Suspect]
     Dosage: REMICADE TRIAL
     Route: 042
     Dates: start: 20020101, end: 20030101
  9. REMICADE [Suspect]
     Route: 042
     Dates: start: 20110705

REACTIONS (5)
  - BRONCHOPULMONARY ASPERGILLOSIS [None]
  - LIVER ABSCESS [None]
  - ABDOMINAL PAIN [None]
  - PNEUMONIA [None]
  - SMALL INTESTINE CARCINOMA [None]
